FAERS Safety Report 20966303 (Version 1)
Quarter: 2022Q2

REPORT INFORMATION
  Report Type: Spontaneous
  Country: US (occurrence: None)
  Receive Date: 20220615
  Receipt Date: 20220615
  Transmission Date: 20220720
  Serious: No
  Sender: FDA-Public Use
  Company Number: None

PATIENT
  Sex: Male

DRUGS (1)
  1. NORDITROPIN [Suspect]
     Active Substance: SOMATROPIN
     Indication: Hypopituitarism
     Dosage: FREQUENCY : AT BEDTIME;?
     Route: 058
     Dates: start: 20220608

REACTIONS (5)
  - Oropharyngeal pain [None]
  - Abdominal pain upper [None]
  - Product quality issue [None]
  - Device defective [None]
  - Product contamination physical [None]
